FAERS Safety Report 5281760-7 (Version None)
Quarter: 2007Q1

REPORT INFORMATION
  Report Type: 
  Country: None (occurrence: None)
  Receive Date: 20070330
  Receipt Date: 20070322
  Transmission Date: 20070707
  Serious: Yes (Hospitalization)
  Sender: FDA-Public Use
  Company Number: FR-GLAXOSMITHKLINE-B0463320A

PATIENT
  Age: 73 Year
  Sex: Male

DRUGS (3)
  1. AVANDAMET [Suspect]
     Dosage: 4UNIT PER DAY
     Route: 048
     Dates: start: 20061101, end: 20070211
  2. ELISOR [Suspect]
     Dosage: 40MG PER DAY
     Route: 048
  3. DAONIL 5 MG [Suspect]
     Dosage: 10MG PER DAY
     Route: 048

REACTIONS (8)
  - AORTIC VALVE INCOMPETENCE [None]
  - ASCITES [None]
  - DILATATION VENTRICULAR [None]
  - DYSPNOEA [None]
  - FLUID RETENTION [None]
  - OEDEMA PERIPHERAL [None]
  - VENTRICULAR HYPOKINESIA [None]
  - WEIGHT INCREASED [None]
